FAERS Safety Report 6184188-0 (Version None)
Quarter: 2009Q2

REPORT INFORMATION
  Report Type: 
  Country: None (occurrence: None)
  Receive Date: 20090506
  Receipt Date: 20090402
  Transmission Date: 20091009
  Serious: Yes (Other)
  Sender: FDA-Public Use
  Company Number: 2009S1006080

PATIENT
  Age: 16 Year
  Sex: Male
  Weight: 56.6996 kg

DRUGS (4)
  1. AMNESTEEM [Suspect]
     Indication: ACNE CYSTIC
     Dosage: 20 MG; DAILY; ORAL
     Route: 048
     Dates: start: 20081219, end: 20090309
  2. AMNESTEEM [Suspect]
     Indication: ACNE CYSTIC
     Dosage: 40 MG; DAILY
     Dates: start: 20081219, end: 20090301
  3. SOTRET [Suspect]
     Indication: ACNE CYSTIC
     Dosage: 20 MG; DAILY; ORAL
     Route: 048
  4. SOTRET [Suspect]
     Indication: ACNE CYSTIC
     Dosage: 40 MG; DAILY; ORAL
     Route: 048

REACTIONS (1)
  - SUICIDAL IDEATION [None]
